FAERS Safety Report 8521231-5 (Version None)
Quarter: 2012Q3

REPORT INFORMATION
  Report Type: 
  Country: None (occurrence: None)
  Receive Date: 20120719
  Receipt Date: 20120713
  Transmission Date: 20120928
  Serious: Yes (Other)
  Sender: FDA-Public Use
  Company Number: US-BAYER-2012-068013

PATIENT
  Age: 27 Year
  Sex: Female

DRUGS (1)
  1. MIRENA [Suspect]
     Indication: CONTRACEPTION
     Dosage: 20 MCG/24HR, CONT
     Dates: start: 20120412, end: 20120706

REACTIONS (4)
  - VAGINAL HAEMORRHAGE [None]
  - PELVIC PAIN [None]
  - DEVICE EXPULSION [None]
  - ABDOMINAL PAIN [None]
